FAERS Safety Report 22016318 (Version 1)
Quarter: 2023Q1

REPORT INFORMATION
  Report Type: Spontaneous
  Country: US (occurrence: US)
  Receive Date: 20230221
  Receipt Date: 20230221
  Transmission Date: 20230417
  Serious: Yes (Other)
  Sender: FDA-Public Use
  Company Number: US-UPSHER-SMITH LABORATORIES, LLC-2023USL00042

PATIENT
  Age: 24 Year
  Sex: Male
  Weight: 63.492 kg

DRUGS (17)
  1. CLOBAZAM [Suspect]
     Active Substance: CLOBAZAM
     Indication: Epilepsy
     Dosage: STARTED ON SMALL DOSE AND ADJUSTED UP
     Route: 048
     Dates: start: 201909
  2. CLOBAZAM [Suspect]
     Active Substance: CLOBAZAM
     Indication: Seizure
     Dosage: 20 MG, 2X/DAY IN THE MORNING AND NIGHT (UNKNOWN MANUFACTURER)
     Route: 048
     Dates: start: 201909
  3. CLOBAZAM [Suspect]
     Active Substance: CLOBAZAM
     Dosage: 10 MG, 2X/DAY IN THE MORNING AND NIGHT (UNKNOWN MANUFACTURER)
     Route: 048
  4. CLOBAZAM [Suspect]
     Active Substance: CLOBAZAM
     Dosage: 10 MG, 1X/DAY (UNKNOWN MANUFACTURER)
     Route: 048
     Dates: end: 20230111
  5. CLOBAZAM [Suspect]
     Active Substance: CLOBAZAM
     Dosage: 20 MG, IN THE EVENING (RESUMPTION OF TREATMENT)
     Route: 048
     Dates: start: 20230114, end: 20230114
  6. CLOBAZAM [Suspect]
     Active Substance: CLOBAZAM
     Dosage: 20 MG, 2X/DAY  IN THE MORNING AND NIGHT
     Route: 048
     Dates: start: 20230115, end: 20230115
  7. CLOBAZAM [Suspect]
     Active Substance: CLOBAZAM
     Dosage: 10 MG IN THE AM AND 20 MG IN THE EVENING
     Route: 048
     Dates: start: 20230116, end: 2023
  8. CLOBAZAM [Suspect]
     Active Substance: CLOBAZAM
     Dosage: 20 MG, 2X/DAY IN THE MORNING AND NIGHT
     Route: 048
     Dates: start: 2023, end: 20230204
  9. CELLCEPT [Suspect]
     Active Substance: MYCOPHENOLATE MOFETIL
  10. PREDNISONE [Suspect]
     Active Substance: PREDNISONE
     Dosage: UNK, 1X/DAY IN THE MORNING
  11. GABAPENTIN [Concomitant]
     Active Substance: GABAPENTIN
     Dosage: UNK, 1X/DAY AT NIGHT
  12. VIMPAT [Concomitant]
     Active Substance: LACOSAMIDE
  13. FLUOXETINE [Concomitant]
     Active Substance: FLUOXETINE HYDROCHLORIDE
  14. ASPIRIN [Concomitant]
     Active Substance: ASPIRIN
     Dosage: 81 MG
  15. METOPROLOL [Concomitant]
     Active Substance: METOPROLOL
     Dosage: LOW DOSE
  16. FAMOTIDINE [Concomitant]
     Active Substance: FAMOTIDINE
  17. ATIVAN [Concomitant]
     Active Substance: LORAZEPAM
     Dosage: UNK, AS NEEDED

REACTIONS (6)
  - Suicidal ideation [Recovering/Resolving]
  - Fall [Recovered/Resolved]
  - Agitation [Not Recovered/Not Resolved]
  - Aggression [Not Recovered/Not Resolved]
  - Anxiety [Not Recovered/Not Resolved]
  - Product dose omission issue [Not Recovered/Not Resolved]

NARRATIVE: CASE EVENT DATE: 20230101
